FAERS Safety Report 13372362 (Version 3)
Quarter: 2017Q2

REPORT INFORMATION
  Report Type: Report from Study
  Country: None (occurrence: CA)
  Receive Date: 20170327
  Receipt Date: 20170410
  Transmission Date: 20170830
  Serious: Yes (Other)
  Sender: FDA-Public Use
  Company Number: CA-ABBVIE-17K-028-1920128-00

PATIENT
  Age: 41 Year
  Sex: Male

DRUGS (1)
  1. HUMIRA [Suspect]
     Active Substance: ADALIMUMAB
     Indication: ANKYLOSING SPONDYLITIS
     Route: 058
     Dates: start: 20160126, end: 20170228

REACTIONS (8)
  - Hypoacusis [Unknown]
  - Drug hypersensitivity [Unknown]
  - Ankylosing spondylitis [Not Recovered/Not Resolved]
  - Ear haemorrhage [Unknown]
  - Ear infection [Not Recovered/Not Resolved]
  - Otorrhoea [Unknown]
  - Viral upper respiratory tract infection [Unknown]
  - Urticaria [Unknown]

NARRATIVE: CASE EVENT DATE: 20161201
